FAERS Safety Report 17665260 (Version 1)
Quarter: 2020Q2

REPORT INFORMATION
  Report Type: Report from Study
  Country: US (occurrence: US)
  Receive Date: 20200414
  Receipt Date: 20200414
  Transmission Date: 20200713
  Serious: Yes (Other)
  Sender: FDA-Public Use
  Company Number: US-MYLANLABS-2020M1037158

PATIENT
  Age: 66 Year
  Sex: Female

DRUGS (3)
  1. KETAMINE [Suspect]
     Active Substance: KETAMINE
     Indication: SEDATION
  2. MORPHINE [Concomitant]
     Active Substance: MORPHINE
     Indication: PRODUCT USED FOR UNKNOWN INDICATION
     Dosage: 5 MILLIGRAM
     Route: 042
  3. KETAMINE [Suspect]
     Active Substance: KETAMINE
     Indication: PAIN
     Dosage: 0.28 MILLIGRAM/KILOGRAM
     Route: 042

REACTIONS (3)
  - Neuropsychiatric symptoms [Unknown]
  - Hypertension [Unknown]
  - Cardiovascular disorder [Unknown]
